FAERS Safety Report 7221287-6 (Version None)
Quarter: 2011Q1

REPORT INFORMATION
  Report Type: 
  Country: None (occurrence: None)
  Receive Date: 20110112
  Receipt Date: 20110106
  Transmission Date: 20110831
  Serious: Yes (Other)
  Sender: FDA-Public Use
  Company Number: PHHY2010CA24326

PATIENT
  Sex: Female

DRUGS (2)
  1. EXJADE [Suspect]
     Indication: MYELODYSPLASTIC SYNDROME
     Dosage: 1250 MG, QD
  2. EXJADE [Suspect]
     Dosage: 1500 MG, QD
     Route: 048

REACTIONS (5)
  - FATIGUE [None]
  - BLOOD IRON INCREASED [None]
  - HYPERSOMNIA [None]
  - URINARY TRACT INFECTION [None]
  - AMNESIA [None]
